FAERS Safety Report 8909448 (Version 2)
Quarter: 2012Q4

REPORT INFORMATION
  Report Type: Spontaneous
  Country: JP (occurrence: None)
  Receive Date: 20121109
  Receipt Date: 20121121
  Transmission Date: 20130627
  Serious: Yes (Other)
  Sender: FDA-Public Use
  Company Number: DSA_60813_2012

PATIENT
  Age: 50 Year
  Sex: Male

DRUGS (5)
  1. FLUOROURACIL (FLUOROURACIL) [Suspect]
     Indication: RECTAL CANCER
     Route: 040
     Dates: start: 201101, end: 201101
  2. FLUOROURACIL (FLUOROURACIL) [Suspect]
     Indication: RECTAL CANCER
     Route: 041
     Dates: start: 201101
  3. OXALIPLATIN (OXALIPLATIN) [Suspect]
     Indication: RECTAL CANCER
     Route: 041
     Dates: start: 201101
  4. OXALIPLATIN (OXALIPLATIN) [Suspect]
     Indication: RECTAL CANCER
     Route: 041
  5. CALCIUM LEVOFOLINATE [Concomitant]

REACTIONS (4)
  - Febrile neutropenia [None]
  - Aspartate aminotransferase increased [None]
  - Alanine aminotransferase increased [None]
  - Gamma-glutamyltransferase increased [None]
